FAERS Safety Report 15774949 (Version 3)
Quarter: 2019Q1

REPORT INFORMATION
  Report Type: Spontaneous
  Country: CA (occurrence: CA)
  Receive Date: 20181230
  Receipt Date: 20190219
  Transmission Date: 20190417
  Serious: Yes (Death, Other)
  Sender: FDA-Public Use
  Company Number: CA-BEH-2018097988

PATIENT
  Age: 66 Year
  Sex: Female

DRUGS (3)
  1. ALDACTONE [Concomitant]
     Active Substance: SPIRONOLACTONE
     Dosage: 300 MG, QD
     Route: 065
  2. LASIX [Concomitant]
     Active Substance: FUROSEMIDE
     Dosage: 80 MG, BID
     Route: 065
  3. ALBUREX [Suspect]
     Active Substance: ALBUMIN HUMAN
     Indication: FLUID REPLACEMENT
     Dosage: 75 ML, UNK
     Route: 065
     Dates: start: 20181126, end: 20181126

REACTIONS (3)
  - Hypotension [Recovered/Resolved]
  - Vision blurred [Unknown]
  - Hypotension [Unknown]

NARRATIVE: CASE EVENT DATE: 20181126
